FAERS Safety Report 16498120 (Version 1)
Quarter: 2019Q2

REPORT INFORMATION
  Report Type: Spontaneous
  Country: US (occurrence: US)
  Receive Date: 20190628
  Receipt Date: 20190628
  Transmission Date: 20190711
  Serious: Yes (Death)
  Sender: FDA-Public Use
  Company Number: US-LUNDBECK-DKLU3000023

PATIENT
  Age: 11 Month
  Sex: Male

DRUGS (6)
  1. SABRIL [Suspect]
     Active Substance: VIGABATRIN
     Indication: INFANTILE SPASMS
     Route: 048
  2. SABRIL [Suspect]
     Active Substance: VIGABATRIN
     Route: 048
  3. VIGABATRIN. [Concomitant]
     Active Substance: VIGABATRIN
     Indication: PRODUCT USED FOR UNKNOWN INDICATION
     Route: 065
  4. SABRIL [Suspect]
     Active Substance: VIGABATRIN
     Route: 048
  5. SABRIL [Suspect]
     Active Substance: VIGABATRIN
     Route: 048
  6. SABRIL [Suspect]
     Active Substance: VIGABATRIN
     Route: 048

REACTIONS (1)
  - Death [Fatal]

NARRATIVE: CASE EVENT DATE: 20190618
